FAERS Safety Report 6904472-X (Version None)
Quarter: 2010Q3

REPORT INFORMATION
  Report Type: 
  Country: None (occurrence: None)
  Receive Date: 20100804
  Receipt Date: 20090526
  Transmission Date: 20110219
  Serious: Yes (Other)
  Sender: FDA-Public Use
  Company Number: US-PFIZER INC-2009218891

PATIENT
  Sex: Female

DRUGS (1)
  1. LYRICA [Suspect]

REACTIONS (5)
  - ABDOMINAL PAIN UPPER [None]
  - FEELING ABNORMAL [None]
  - PARANOIA [None]
  - SPEECH DISORDER [None]
  - THINKING ABNORMAL [None]
